FAERS Safety Report 24838879 (Version 1)
Quarter: 2025Q1

REPORT INFORMATION
  Report Type: Report from Study
  Country: CA (occurrence: CA)
  Receive Date: 20250114
  Receipt Date: 20250114
  Transmission Date: 20250409
  Serious: Yes (Hospitalization)
  Sender: ABBVIE
  Company Number: CA-ABBVIE-6076350

PATIENT
  Age: 53 Year
  Sex: Female

DRUGS (1)
  1. RINVOQ [Suspect]
     Active Substance: UPADACITINIB
     Indication: Crohn^s disease
     Dosage: FOR 12 WEEKS
     Route: 048

REACTIONS (4)
  - Cyst rupture [Unknown]
  - Pain [Unknown]
  - Induration [Unknown]
  - Wound secretion [Unknown]

NARRATIVE: CASE EVENT DATE: 20241220
